FAERS Safety Report 18922576 (Version 1)
Quarter: 2021Q1

REPORT INFORMATION
  Report Type: Spontaneous
  Country: CA (occurrence: CA)
  Receive Date: 20210222
  Receipt Date: 20210222
  Transmission Date: 20210420
  Serious: Yes (Other)
  Sender: FDA-Public Use
  Company Number: CA-ABBVIE-21K-028-3776508-00

PATIENT
  Age: 45 Year
  Sex: Female

DRUGS (2)
  1. TYLENOL [Concomitant]
     Active Substance: ACETAMINOPHEN
     Indication: PRODUCT USED FOR UNKNOWN INDICATION
     Dosage: ELIXIR
  2. HUMIRA [Suspect]
     Active Substance: ADALIMUMAB
     Indication: PSORIATIC ARTHROPATHY
     Route: 058

REACTIONS (6)
  - Throat tightness [Recovering/Resolving]
  - Hypoaesthesia oral [Recovering/Resolving]
  - Injection site reaction [Recovering/Resolving]
  - Rash papular [Recovering/Resolving]
  - Photosensitivity reaction [Recovering/Resolving]
  - Paraesthesia oral [Recovering/Resolving]
